FAERS Safety Report 16507616 (Version 2)
Quarter: 2019Q3

REPORT INFORMATION
  Report Type: Spontaneous
  Country: MY (occurrence: MY)
  Receive Date: 20190702
  Receipt Date: 20190813
  Transmission Date: 20191004
  Serious: Yes (Hospitalization)
  Sender: FDA-Public Use
  Company Number: MY-ASTELLAS-2019US025696

PATIENT
  Age: 69 Year

DRUGS (1)
  1. XTANDI [Suspect]
     Active Substance: ENZALUTAMIDE
     Indication: HORMONE-REFRACTORY PROSTATE CANCER
     Dosage: 160 MG ( 4 CAPSULES), ONCE DAILY
     Route: 048
     Dates: start: 20190511, end: 20190617

REACTIONS (2)
  - Confusional state [Recovered/Resolved]
  - Poverty of speech [Recovered/Resolved]

NARRATIVE: CASE EVENT DATE: 20190615
